FAERS Safety Report 13296561 (Version 2)
Quarter: 2017Q1

REPORT INFORMATION
  Report Type: Spontaneous
  Country: DE (occurrence: DE)
  Receive Date: 20170306
  Receipt Date: 20170328
  Transmission Date: 20170428
  Serious: Yes (Life-Threatening, Other)
  Sender: FDA-Public Use
  Company Number: DE-SUN PHARMACEUTICAL INDUSTRIES LTD-2017R1-135106

PATIENT
  Sex: Male

DRUGS (1)
  1. INDOMETHACIN. [Suspect]
     Active Substance: INDOMETHACIN
     Indication: HEADACHE
     Dosage: 150 MG, DAILY (MANY YEARS)
     Route: 065

REACTIONS (1)
  - Myocardial infarction [Unknown]
